FAERS Safety Report 10510462 (Version 1)
Quarter: 2014Q4

REPORT INFORMATION
  Report Type: Spontaneous
  Country: US (occurrence: None)
  Receive Date: 20141009
  Receipt Date: 20141009
  Transmission Date: 20150528
  Serious: Yes (Life-Threatening, Hospitalization)
  Sender: FDA-Public Use
  Company Number: None

PATIENT
  Age: 58 Year
  Sex: Male
  Weight: 127.01 kg

DRUGS (1)
  1. VICTOZA [Suspect]
     Active Substance: LIRAGLUTIDE
     Indication: TYPE 2 DIABETES MELLITUS
     Dosage: GIVEN INTO/UNDER THE SKIN
     Route: 058
     Dates: start: 20140801, end: 20141005

REACTIONS (3)
  - Acute kidney injury [None]
  - Blood pressure decreased [None]
  - Dehydration [None]

NARRATIVE: CASE EVENT DATE: 20141005
